FAERS Safety Report 6453748-1 (Version None)
Quarter: 2009Q4

REPORT INFORMATION
  Report Type: 
  Country: None (occurrence: None)
  Receive Date: 20091124
  Receipt Date: 20091008
  Transmission Date: 20100525
  Serious: No
  Sender: FDA-Public Use
  Company Number: US-BRISTOL-MYERS SQUIBB COMPANY-14813075

PATIENT
  Sex: Male

DRUGS (1)
  1. ONGLYZA [Suspect]
     Dosage: RESTARTED

REACTIONS (2)
  - NAUSEA [None]
  - VOMITING [None]
